FAERS Safety Report 8767888 (Version 2)
Quarter: 2012Q4

REPORT INFORMATION
  Report Type: 
  Country: JP (occurrence: JP)
  Receive Date: 20120905
  Receipt Date: 20121017
  Transmission Date: 20130627
  Serious: Yes (Other)
  Sender: FDA-Public Use
  Company Number: PHHY2012JP074493

PATIENT
  Age: 69 Year
  Sex: Male

DRUGS (4)
  1. OXALIPLATIN [Suspect]
     Indication: COLORECTAL CANCER
     Dosage: 100 mg/m2, On day 1
  2. GIMERACIL [Suspect]
     Indication: COLORECTAL CANCER
     Route: 048
  3. OTERACIL [Suspect]
     Indication: COLORECTAL CANCER
  4. TEGAFUR [Suspect]
     Indication: COLORECTAL CANCER

REACTIONS (4)
  - Hyperammonaemic encephalopathy [Recovering/Resolving]
  - Hepatic encephalopathy [Recovering/Resolving]
  - Fatigue [Unknown]
  - Tremor [Unknown]
